FAERS Safety Report 11421721 (Version 3)
Quarter: 2017Q1

REPORT INFORMATION
  Report Type: Report from Study
  Country: GB (occurrence: GB)
  Receive Date: 20150827
  Receipt Date: 20170327
  Transmission Date: 20170428
  Serious: Yes (Death, Hospitalization, Other)
  Sender: FDA-Public Use
  Company Number: GB-AMGEN-GBRSL2015085076

PATIENT
  Age: 89 Year
  Sex: Female

DRUGS (1)
  1. ARANESP [Suspect]
     Active Substance: DARBEPOETIN ALFA
     Indication: PRODUCT USED FOR UNKNOWN INDICATION
     Dosage: 50 MCG, Q4WK
     Route: 065

REACTIONS (2)
  - Vomiting [Unknown]
  - Death [Fatal]

NARRATIVE: CASE EVENT DATE: 20170317
